FAERS Safety Report 10231423 (Version 2)
Quarter: 2014Q2

REPORT INFORMATION
  Report Type: Report from Study
  Country: US (occurrence: US)
  Receive Date: 20140611
  Receipt Date: 20140611
  Transmission Date: 20141212
  Serious: Yes (Death, Hospitalization, Other)
  Sender: FDA-Public Use
  Company Number: US-ASTRAZENECA-2014SE29828

PATIENT
  Age: 66 Year
  Sex: Male
  Weight: 66.7 kg

DRUGS (5)
  1. SYMBICORT [Suspect]
     Indication: EMPHYSEMA
     Dosage: 160/4.5MCG, 2 PUFFS BID
     Route: 055
     Dates: start: 2007
  2. SYMBICORT [Suspect]
     Indication: CHRONIC OBSTRUCTIVE PULMONARY DISEASE
     Dosage: 160/4.5MCG, 2 PUFFS BID
     Route: 055
     Dates: start: 2007
  3. CRESTOR [Suspect]
     Route: 048
  4. COUMADIN [Concomitant]
     Indication: ANTICOAGULANT THERAPY
  5. XARELTO [Concomitant]
     Indication: ANTICOAGULANT THERAPY

REACTIONS (13)
  - Death [Fatal]
  - Aneurysm [Unknown]
  - Cataract [Unknown]
  - Pulmonary embolism [Unknown]
  - Oedema peripheral [Unknown]
  - Fall [Unknown]
  - Rib fracture [Unknown]
  - Pulmonary oedema [Unknown]
  - Dehydration [Unknown]
  - Diabetes mellitus [Unknown]
  - Malaise [Unknown]
  - Renal disorder [Unknown]
  - Skin abrasion [Unknown]
